FAERS Safety Report 8049319-6 (Version None)
Quarter: 2012Q1

REPORT INFORMATION
  Report Type: 
  Country: None (occurrence: None)
  Receive Date: 20120117
  Receipt Date: 20120113
  Transmission Date: 20120608
  Serious: Yes (Other)
  Sender: FDA-Public Use
  Company Number: FR-ROCHE-800740

PATIENT
  Sex: Male
  Weight: 91 kg

DRUGS (7)
  1. AVASTIN [Suspect]
     Indication: COLORECTAL CANCER
     Dosage: ROUTE: PV
     Route: 050
     Dates: start: 20110502, end: 20110719
  2. METHYLPREDNISOLONE SODIUM SUCCINATE [Concomitant]
     Indication: NAUSEA
     Route: 042
     Dates: start: 20110502, end: 20110719
  3. ZOFRAN [Concomitant]
     Indication: NAUSEA
     Dosage: ROUTE: PV
     Route: 050
     Dates: start: 20110502, end: 20110729
  4. PREDNISONE TAB [Concomitant]
     Indication: DERMATOMYOSITIS
     Route: 048
  5. FLUOROURACIL [Concomitant]
     Indication: COLORECTAL CANCER
     Dosage: ROUTE: PV
     Route: 050
     Dates: start: 20110502, end: 20110518
  6. LEVOLEUCOVORIN CALCIUM [Concomitant]
     Indication: COLORECTAL CANCER
     Dosage: ROUTE: PV
     Route: 050
     Dates: start: 20110502, end: 20110719
  7. IRINOTECAN HCL [Concomitant]
     Indication: COLORECTAL CANCER
     Dosage: ROUTE: PV
     Route: 050
     Dates: start: 20110502, end: 20110719

REACTIONS (1)
  - ATRIAL FIBRILLATION [None]
